FAERS Safety Report 9840183 (Version 1)
Quarter: 2014Q1

REPORT INFORMATION
  Report Type: Spontaneous
  Country: ES (occurrence: ES)
  Receive Date: 20140124
  Receipt Date: 20140124
  Transmission Date: 20141002
  Serious: Yes (Other)
  Sender: FDA-Public Use
  Company Number: ES-ACCORD-021374

PATIENT
  Age: 55 Year
  Sex: Female

DRUGS (2)
  1. DOCETAXEL [Suspect]
     Indication: BREAST CANCER
     Dosage: CYCLES EVERY 21 DAYS FOR 4 PLANNED COURSES.
  2. PACLITAXEL [Suspect]
     Indication: BREAST CANCER

REACTIONS (9)
  - Asthenia [Recovering/Resolving]
  - Neuropathy peripheral [Not Recovered/Not Resolved]
  - Skin toxicity [Recovering/Resolving]
  - Dysaesthesia [Recovering/Resolving]
  - Myalgia [Recovering/Resolving]
  - Diarrhoea [Recovered/Resolved]
  - Hypersensitivity [Unknown]
  - Arthralgia [Recovering/Resolving]
  - Nail toxicity [Unknown]
